FAERS Safety Report 5050294-7 (Version None)
Quarter: 2006Q3

REPORT INFORMATION
  Report Type: 
  Country: None (occurrence: None)
  Receive Date: 20060713
  Receipt Date: 20060704
  Transmission Date: 20061208
  Serious: Yes (Hospitalization)
  Sender: FDA-Public Use
  Company Number: FR-AVENTIS-200612400FR

PATIENT
  Age: 50 Year
  Sex: Male

DRUGS (4)
  1. RIFADIN [Suspect]
     Dates: end: 20060331
  2. LOVENOX [Suspect]
     Route: 058
     Dates: end: 20060331
  3. CIFLOX [Suspect]
     Dates: end: 20060331
  4. COLCHICINE [Concomitant]
     Indication: GOUT
     Dates: start: 20060303, end: 20060318

REACTIONS (3)
  - LEUKOPENIA [None]
  - LYMPHOPENIA [None]
  - NEUTROPENIA [None]
